FAERS Safety Report 7762623-1 (Version None)
Quarter: 2011Q3

REPORT INFORMATION
  Report Type: 
  Country: None (occurrence: None)
  Receive Date: 20110920
  Receipt Date: 20110912
  Transmission Date: 20111222
  Serious: Yes (Hospitalization)
  Sender: FDA-Public Use
  Company Number: JP-VIIV HEALTHCARE LIMITED-B0739746A

PATIENT
  Sex: Male

DRUGS (9)
  1. NORVIR [Suspect]
     Indication: HIV INFECTION
     Dosage: 100MG PER DAY
     Dates: start: 20050615
  2. REYATAZ [Suspect]
     Indication: HIV INFECTION
     Dosage: 300MG PER DAY
     Route: 048
     Dates: start: 20050615
  3. EPZICOM [Suspect]
     Indication: HIV INFECTION
     Dosage: 1TAB PER DAY
     Dates: start: 20050615
  4. PRAVASTATIN SODIUM [Concomitant]
     Dates: start: 20060301, end: 20070417
  5. ALLOPURINOL [Concomitant]
     Dates: start: 20050511
  6. PAXIL [Concomitant]
     Dates: start: 20050401
  7. EMTRIVA [Concomitant]
     Indication: HIV INFECTION
  8. MEILAX [Concomitant]
     Dates: start: 20050401
  9. LIPIDIL [Concomitant]
     Dates: start: 20060111

REACTIONS (1)
  - DIABETES MELLITUS [None]
